FAERS Safety Report 17935071 (Version 1)
Quarter: 2020Q2

REPORT INFORMATION
  Report Type: Spontaneous
  Country: US (occurrence: US)
  Receive Date: 20200624
  Receipt Date: 20200624
  Transmission Date: 20200714
  Serious: No
  Sender: FDA-Public Use
  Company Number: US-PFIZER INC-2020242181

PATIENT
  Age: 75 Year
  Sex: Female
  Weight: 54.43 kg

DRUGS (2)
  1. IBRANCE [Suspect]
     Active Substance: PALBOCICLIB
     Indication: BREAST CANCER METASTATIC
     Dosage: 125 MG, CYCLIC (3 WEEKS THEN 1 WEEK OFF)
     Route: 048
     Dates: start: 202005
  2. LETROZOLE. [Concomitant]
     Active Substance: LETROZOLE
     Indication: BREAST CANCER METASTATIC
     Dosage: 75 MG, DAILY (NOT SURE OF DOSE BUT STATES 75MG BY MOUTH DAILY)
     Route: 048

REACTIONS (4)
  - Hair texture abnormal [Unknown]
  - Alopecia [Unknown]
  - Condition aggravated [Unknown]
  - Dry skin [Unknown]

NARRATIVE: CASE EVENT DATE: 202005
